FAERS Safety Report 11456813 (Version 1)
Quarter: 2015Q3

REPORT INFORMATION
  Report Type: Spontaneous
  Country: US (occurrence: US)
  Receive Date: 20150903
  Receipt Date: 20150903
  Transmission Date: 20151125
  Serious: No
  Sender: FDA-Public Use
  Company Number: PHHY2015US104291

PATIENT
  Sex: Female

DRUGS (1)
  1. CAMBIA [Suspect]
     Active Substance: DICLOFENAC POTASSIUM
     Indication: MIGRAINE
     Dosage: 2 DF, QD
     Route: 065

REACTIONS (4)
  - Retching [Recovered/Resolved]
  - Abdominal discomfort [Unknown]
  - Product formulation issue [Unknown]
  - Product difficult to swallow [Unknown]
